FAERS Safety Report 23770901 (Version 1)
Quarter: 2024Q2

REPORT INFORMATION
  Report Type: 
  Country: AU (occurrence: AU)
  Receive Date: 20240423
  Receipt Date: 20240423
  Transmission Date: 20240716
  Serious: Yes (Other)
  Sender: FDA-Public Use
  Company Number: AU-CELLTRION INC.-2024AU009144

PATIENT

DRUGS (5)
  1. TRASTUZUMAB [Suspect]
     Active Substance: TRASTUZUMAB
     Indication: Product used for unknown indication
  2. PERTUZUMAB [Suspect]
     Active Substance: PERTUZUMAB
     Indication: Product used for unknown indication
  3. PACLITAXEL [Suspect]
     Active Substance: PACLITAXEL
     Indication: Product used for unknown indication
  4. CAPECITABINE [Concomitant]
     Active Substance: CAPECITABINE
  5. TUCATINIB [Concomitant]
     Active Substance: TUCATINIB

REACTIONS (3)
  - Pneumonitis [Unknown]
  - Hepatitis [Unknown]
  - Neoplasm progression [Unknown]
